FAERS Safety Report 25617270 (Version 1)
Quarter: 2025Q3

REPORT INFORMATION
  Report Type: Spontaneous
  Country: US (occurrence: US)
  Receive Date: 20250729
  Receipt Date: 20250729
  Transmission Date: 20251020
  Serious: No
  Sender: GLENMARK
  Company Number: US-GLENMARK PHARMACEUTICALS-2025GMK099429

PATIENT

DRUGS (2)
  1. OLOPATADINE HYDROCHLORIDE OPHTHALMIC SOLUTION 0.1 % [Suspect]
     Active Substance: OLOPATADINE HYDROCHLORIDE
     Indication: Eye pruritus
     Route: 047
  2. OLOPATADINE HYDROCHLORIDE OPHTHALMIC SOLUTION 0.1 % [Suspect]
     Active Substance: OLOPATADINE HYDROCHLORIDE
     Indication: Eye allergy

REACTIONS (1)
  - Therapeutic product effect incomplete [Unknown]
